FAERS Safety Report 5767410-1 (Version None)
Quarter: 2008Q2

REPORT INFORMATION
  Report Type: 
  Country: None (occurrence: None)
  Receive Date: 20080612
  Receipt Date: 20080609
  Transmission Date: 20081010
  Serious: Yes (Hospitalization, Disabling)
  Sender: FDA-Public Use
  Company Number: US-MERCK-0705USA01433

PATIENT
  Age: 64 Year
  Sex: Female

DRUGS (2)
  1. FOSAMAX [Suspect]
     Indication: OSTEOPOROSIS
     Route: 048
     Dates: start: 19980401, end: 20060401
  2. HORMONES (UNSPECIFIED) [Concomitant]
     Route: 065
     Dates: start: 19970101, end: 20030101

REACTIONS (5)
  - CATARACT [None]
  - EYE DISORDER [None]
  - OSTEONECROSIS [None]
  - RHEUMATOID ARTHRITIS [None]
  - TOOTH DISORDER [None]
